FAERS Safety Report 6093539-7 (Version None)
Quarter: 2009Q1

REPORT INFORMATION
  Report Type: 
  Country: None (occurrence: None)
  Receive Date: 20090226
  Receipt Date: 20090126
  Transmission Date: 20090719
  Serious: No
  Sender: FDA-Public Use
  Company Number: US-BAYER-200912366NA

PATIENT
  Age: 40 Year
  Sex: Female
  Weight: 64 kg

DRUGS (1)
  1. MIRENA [Suspect]
     Indication: MENSTRUAL DISORDER
     Route: 015
     Dates: start: 20090119

REACTIONS (2)
  - ABDOMINAL PAIN [None]
  - PROCEDURAL PAIN [None]
